FAERS Safety Report 19508482 (Version 7)
Quarter: 2024Q3

REPORT INFORMATION
  Report Type: Report from Study
  Country: US (occurrence: US)
  Receive Date: 20210708
  Receipt Date: 20240925
  Transmission Date: 20241017
  Serious: No
  Sender: GLAXOSMITHKLINE
  Company Number: US-GLAXOSMITHKLINE-US2021AMR148259

PATIENT
  Sex: Female

DRUGS (6)
  1. NIRAPARIB [Suspect]
     Active Substance: NIRAPARIB
     Indication: Ovarian cancer
     Dosage: 200 MG, QD
     Dates: start: 20210501
  2. NIRAPARIB [Suspect]
     Active Substance: NIRAPARIB
     Dosage: 200 MG, QD
     Dates: start: 20210629
  3. NIRAPARIB [Suspect]
     Active Substance: NIRAPARIB
     Dosage: 200 MG, QD
  4. NIRAPARIB [Suspect]
     Active Substance: NIRAPARIB
     Dosage: 200 MG, QD
  5. NIRAPARIB [Suspect]
     Active Substance: NIRAPARIB
     Dosage: 200 MG, QD
  6. NIRAPARIB [Suspect]
     Active Substance: NIRAPARIB
     Dosage: UNK

REACTIONS (12)
  - Constipation [Not Recovered/Not Resolved]
  - Weight decreased [Unknown]
  - Oesophageal pain [Unknown]
  - Arthropod bite [Unknown]
  - Gastrooesophageal reflux disease [Unknown]
  - Fatigue [Unknown]
  - Nausea [Unknown]
  - Dizziness [Unknown]
  - Sleep disorder [Unknown]
  - Insomnia [Not Recovered/Not Resolved]
  - Abdominal distension [Unknown]
  - Dyspepsia [Not Recovered/Not Resolved]
